FAERS Safety Report 6036051-3 (Version None)
Quarter: 2009Q1

REPORT INFORMATION
  Report Type: 
  Country: None (occurrence: None)
  Receive Date: 20090113
  Receipt Date: 20090105
  Transmission Date: 20090719
  Serious: Yes (Hospitalization)
  Sender: FDA-Public Use
  Company Number: CH-ELI_LILLY_AND_COMPANY-CH200811004964

PATIENT
  Age: 64 Year
  Sex: Male
  Weight: 100 kg

DRUGS (9)
  1. GEMZAR [Suspect]
     Indication: METASTASES TO LIVER
     Dosage: 13-JUN-08, 20-JUN-08, 11-JUL-08,28-JUL-08, 04-AUG-08
     Route: 042
     Dates: start: 20080613
  2. ASPIRIN [Concomitant]
     Dosage: 100 MG, DAILY (1/D)
     Route: 048
  3. SORTIS [Concomitant]
     Dosage: 20 MG, DAILY (1/D)
     Route: 048
  4. QUINAPRIL [Concomitant]
     Dosage: 5 MG, DAILY (1/D)
     Route: 048
  5. NEBILET [Concomitant]
     Dosage: 5 MG, DAILY (1/D)
     Route: 048
  6. CREON [Concomitant]
     Dosage: 50000 U, 3/D
     Route: 048
  7. CALCIMAGON-D 3 [Concomitant]
     Dosage: 1 D/F, DAILY (1/D)
     Route: 048
  8. REMERON [Concomitant]
     Dosage: 30 MG, DAILY (1/D)
     Route: 048
  9. SPIRICORT [Concomitant]
     Dosage: 5 MG, DAILY (1/D)
     Route: 048

REACTIONS (1)
  - CAPILLARY LEAK SYNDROME [None]
